FAERS Safety Report 6636488-5 (Version None)
Quarter: 2010Q1

REPORT INFORMATION
  Report Type: 
  Country: None (occurrence: None)
  Receive Date: 20100316
  Receipt Date: 20100308
  Transmission Date: 20100710
  Serious: Yes (Hospitalization)
  Sender: FDA-Public Use
  Company Number: KR-B.I. PHARMACEUTICALS,INC./RIDGEFIELD-2010-CS-00131CS

PATIENT
  Sex: Female
  Weight: 54 kg

DRUGS (2)
  1. MICARDIS HCT [Suspect]
     Indication: HYPERTENSION
     Dosage: STRENGTH:TELMISARTAN 40 MG + HYDROCHLOROTHIAZIDE 12.5 MG;DAILY DOSE:40+12.5MG
     Route: 048
     Dates: start: 20090218, end: 20091021
  2. ASTRIX/ASPIRIN ENTERIC COATED [Concomitant]
     Indication: PROPHYLAXIS
     Dosage: 100 MG
     Route: 048
     Dates: start: 20050426, end: 20090520

REACTIONS (1)
  - IDIOPATHIC THROMBOCYTOPENIC PURPURA [None]
